FAERS Safety Report 8947103 (Version 2)
Quarter: 2013Q1

REPORT INFORMATION
  Report Type: Spontaneous
  Country: US (occurrence: US)
  Receive Date: 20121205
  Receipt Date: 20130111
  Transmission Date: 20140127
  Serious: No
  Sender: FDA-Public Use
  Company Number: US-009507513-1212USA001729

PATIENT
  Age: 79 Year
  Sex: Male

DRUGS (5)
  1. CLARITIN [Suspect]
     Indication: HYPERSENSITIVITY
     Dosage: 10 MG, QD
     Route: 048
     Dates: start: 20121015, end: 20121024
  2. CLARITIN [Suspect]
     Indication: MEDICAL OBSERVATION
  3. FLOMAX (MORNIFLUMATE) [Concomitant]
     Indication: PROSTATOMEGALY
     Dosage: UNK, UNKNOWN
  4. COUMADIN [Concomitant]
     Indication: ATRIAL FIBRILLATION
     Dosage: UNK, UNKNOWN
  5. FINASTERIDE [Concomitant]
     Indication: PROSTATOMEGALY
     Dosage: UNK, UNKNOWN

REACTIONS (1)
  - Dysuria [Recovered/Resolved]
